FAERS Safety Report 9345366 (Version 1)
Quarter: 2013Q2

REPORT INFORMATION
  Report Type: Spontaneous
  Country: FR (occurrence: FR)
  Receive Date: 20130613
  Receipt Date: 20130613
  Transmission Date: 20140414
  Serious: Yes (Life-Threatening, Hospitalization, Other)
  Sender: FDA-Public Use
  Company Number: FR-PFIZER INC-2013176721

PATIENT
  Age: 62 Year
  Sex: Male

DRUGS (11)
  1. CORDARONE [Suspect]
     Indication: ATRIAL FIBRILLATION
     Dosage: 200 MG, DAILY
     Route: 048
     Dates: end: 20130415
  2. CORDARONE [Suspect]
     Dosage: 200 MG, DAILY
     Route: 048
     Dates: start: 20130430, end: 20130502
  3. DIGOXINE NATIVELLE [Suspect]
     Indication: ATRIAL FIBRILLATION
     Dosage: UNK
     Route: 048
     Dates: start: 20130416, end: 20130426
  4. TAHOR [Concomitant]
  5. LEVOTHYROX [Concomitant]
     Dosage: UNK
  6. SPECIAFOLDINE [Concomitant]
     Dosage: UNK
  7. PREVISCAN [Concomitant]
     Dosage: UNK
  8. LASILIX [Concomitant]
     Dosage: UNK
  9. NOVONORM [Concomitant]
     Dosage: UNK
  10. CARDENSIEL [Concomitant]
     Dosage: UNK
  11. IRBESARTAN [Concomitant]
     Dosage: UNK

REACTIONS (4)
  - Bradycardia [Recovered/Resolved]
  - Renal failure acute [Unknown]
  - Toxicity to various agents [Unknown]
  - Diarrhoea [Unknown]
